FAERS Safety Report 24738765 (Version 1)
Quarter: 2024Q4

REPORT INFORMATION
  Report Type: Spontaneous
  Country: US (occurrence: US)
  Receive Date: 20241216
  Receipt Date: 20241216
  Transmission Date: 20250115
  Serious: No
  Sender: BAYER HEALTHCARE LLC
  Company Number: US-BAYER-2024A175049

PATIENT
  Age: 7 Year
  Sex: Male

DRUGS (2)
  1. CHILDREN CLARITIN ALLERGY [Suspect]
     Active Substance: LORATADINE
     Indication: Hypersensitivity
     Dosage: 2 DOSAGES IN 24-HOUR PERIOD DOSE
     Route: 048
     Dates: start: 20241011, end: 20241012
  2. CHILDREN CLARITIN ALLERGY [Suspect]
     Active Substance: LORATADINE
     Indication: Nasopharyngitis

REACTIONS (2)
  - Inappropriate schedule of product administration [Unknown]
  - Expired product administered [Unknown]

NARRATIVE: CASE EVENT DATE: 20241211
